FAERS Safety Report 8373731-9 (Version None)
Quarter: 2012Q2

REPORT INFORMATION
  Report Type: 
  Country: None (occurrence: None)
  Receive Date: 20120521
  Receipt Date: 20120516
  Transmission Date: 20120825
  Serious: Yes (Other)
  Sender: FDA-Public Use
  Company Number: US-ROCHE-1069751

PATIENT
  Sex: Male

DRUGS (3)
  1. AMNESTEEM [Suspect]
     Indication: ACNE
     Dates: start: 20070201, end: 20070601
  2. SOTRET [Suspect]
     Indication: ACNE
     Dates: start: 20061201, end: 20070501
  3. ACCUTANE [Suspect]
     Indication: ACNE
     Dates: start: 20041201, end: 20050501

REACTIONS (5)
  - INFLAMMATORY BOWEL DISEASE [None]
  - ANXIETY [None]
  - CROHN'S DISEASE [None]
  - COLITIS ULCERATIVE [None]
  - IRRITABLE BOWEL SYNDROME [None]
